FAERS Safety Report 9071698 (Version 1)
Quarter: 2013Q1

REPORT INFORMATION
  Report Type: Spontaneous
  Country: US (occurrence: US)
  Receive Date: 20130206
  Receipt Date: 20130206
  Transmission Date: 20140127
  Serious: No
  Sender: FDA-Public Use
  Company Number: US-ALLERGAN-1211476US

PATIENT
  Age: 77 Year
  Sex: Female

DRUGS (5)
  1. RESTASIS? [Suspect]
     Indication: DRY EYE
     Dosage: 2 GTT, BID
     Route: 047
  2. CHOLESTEROL- AND TRIGLYCERIDE REDUCERS [Concomitant]
     Indication: BLOOD CHOLESTEROL INCREASED
     Dosage: 1 N/A, UNK
     Route: 048
  3. THYROID MEDICATION [Concomitant]
     Indication: THYROID DISORDER
     Dosage: 1 N/A, QD
     Route: 048
  4. ANTIHYPERTENSIVES [Concomitant]
     Indication: HYPERTENSION
     Dosage: 1 N/A, QD
     Route: 048
  5. ROSACEA CREAM [Concomitant]
     Indication: ROSACEA
     Dosage: UNK, BID
     Route: 061

REACTIONS (2)
  - Eye pruritus [Not Recovered/Not Resolved]
  - Foreign body sensation in eyes [Not Recovered/Not Resolved]
